FAERS Safety Report 10615058 (Version 2)
Quarter: 2014Q4

REPORT INFORMATION
  Report Type: Report from Study
  Country: BR (occurrence: BR)
  Receive Date: 20141201
  Receipt Date: 20141211
  Transmission Date: 20150529
  Serious: Yes (Other)
  Sender: FDA-Public Use
  Company Number: PHHY2014BR156163

PATIENT
  Age: 35 Year
  Sex: Female
  Weight: 74 kg

DRUGS (4)
  1. SANDOSTATIN LAR DEPOT [Suspect]
     Active Substance: OCTREOTIDE ACETATE
     Indication: ACROMEGALY
     Dosage: 30 MG, (1 AMPOULE) QMO/EVERY 28 DAYS
     Route: 065
     Dates: start: 201308
  2. SIMVASTATIN. [Concomitant]
     Active Substance: SIMVASTATIN
     Indication: PROPHYLAXIS
     Dosage: 1 DF, QD
     Route: 048
     Dates: start: 201308
  3. CABERGOLINE. [Concomitant]
     Active Substance: CABERGOLINE
     Indication: NODULE
     Dosage: 3 DF, QW
     Route: 048
     Dates: start: 201304
  4. GLIFAGE [Concomitant]
     Active Substance: METFORMIN HYDROCHLORIDE
     Indication: PRODUCT USED FOR UNKNOWN INDICATION
     Dosage: 3 DF, QD
     Route: 048
     Dates: start: 201308

REACTIONS (3)
  - Procedural haemorrhage [Not Recovered/Not Resolved]
  - Cholelithiasis [Recovered/Resolved]
  - Thyroid neoplasm [Not Recovered/Not Resolved]

NARRATIVE: CASE EVENT DATE: 201401
